FAERS Safety Report 8329480-6 (Version None)
Quarter: 2012Q2

REPORT INFORMATION
  Report Type: 
  Country: None (occurrence: None)
  Receive Date: 20120502
  Receipt Date: 20120427
  Transmission Date: 20120825
  Serious: Yes (Hospitalization)
  Sender: FDA-Public Use
  Company Number: US-PFIZER INC-2012105258

PATIENT
  Sex: Male
  Weight: 95.238 kg

DRUGS (2)
  1. VIAGRA [Suspect]
     Indication: ERECTILE DYSFUNCTION
     Dosage: UNK, AS NEEDED
     Route: 048
  2. IBUPROFEN [Concomitant]
     Indication: JOINT SWELLING
     Dosage: UNK, AS NEEDED

REACTIONS (4)
  - PELVIC FRACTURE [None]
  - INSOMNIA [None]
  - PAIN [None]
  - ACCIDENT [None]
